FAERS Safety Report 4841379-6 (Version None)
Quarter: 2005Q4

REPORT INFORMATION
  Report Type: 
  Country: None (occurrence: None)
  Receive Date: 20051027
  Receipt Date: 20050322
  Transmission Date: 20060501
  Serious: Yes (Other)
  Sender: FDA-Public Use
  Company Number: HQWYE283523MAR05

PATIENT
  Age: 63 Year
  Sex: Female

DRUGS (4)
  1. PREMARIN [Suspect]
     Indication: OESTROGEN REPLACEMENT THERAPY
     Dosage: 1.25 MG, ORAL
     Route: 048
     Dates: start: 19770101, end: 19860101
  2. ESTRACE [Suspect]
     Indication: OESTROGEN REPLACEMENT THERAPY
     Dosage: 1 MG, ORAL
     Route: 048
     Dates: start: 19900101, end: 19970101
  3. OGEN [Suspect]
     Indication: OESTROGEN REPLACEMENT THERAPY
     Dosage: 1.25 MG, ORAL, 1.25 MG, ORAL
     Route: 048
     Dates: start: 19760101, end: 19770101
  4. OGEN [Suspect]
     Indication: OESTROGEN REPLACEMENT THERAPY
     Dosage: 1.25 MG, ORAL, 1.25 MG, ORAL
     Route: 048
     Dates: start: 19880101, end: 19900101

REACTIONS (1)
  - BREAST CANCER [None]
